FAERS Safety Report 4668333-1 (Version None)
Quarter: 2005Q2

REPORT INFORMATION
  Report Type: 
  Country: None (occurrence: None)
  Receive Date: 20050523
  Receipt Date: 20050405
  Transmission Date: 20051028
  Serious: Yes (Death, Other)
  Sender: FDA-Public Use
  Company Number: PHEH2005US04002

PATIENT
  Sex: Female

DRUGS (2)
  1. ZOMETA [Suspect]
     Indication: METASTASES TO BONE
     Route: 042
  2. CHEMOTHERAPEUTICS,OTHER [Concomitant]
     Indication: BREAST CANCER FEMALE

REACTIONS (2)
  - ASEPTIC NECROSIS BONE [None]
  - BREAST CANCER METASTATIC [None]
